FAERS Safety Report 4736762-3 (Version None)
Quarter: 2005Q3

REPORT INFORMATION
  Report Type: 
  Country: None (occurrence: None)
  Receive Date: 20050808
  Receipt Date: 20050726
  Transmission Date: 20060218
  Serious: Yes (Hospitalization)
  Sender: FDA-Public Use
  Company Number: US-MERCK-0507USA04138

PATIENT
  Age: 35 Year
  Sex: Male

DRUGS (1)
  1. CRIXIVAN [Suspect]
     Indication: HIV INFECTION
     Route: 048
     Dates: start: 19950101, end: 20010401

REACTIONS (6)
  - CONGESTIVE CARDIOMYOPATHY [None]
  - GLOMERULONEPHRITIS PROLIFERATIVE [None]
  - HEPATITIS A [None]
  - HEPATITIS B [None]
  - NEPHROLITHIASIS [None]
  - VENTRICULAR HYPOKINESIA [None]
